FAERS Safety Report 4926488-5 (Version None)
Quarter: 2006Q1

REPORT INFORMATION
  Report Type: 
  Country: None (occurrence: None)
  Receive Date: 20060228
  Receipt Date: 20051207
  Transmission Date: 20060701
  Serious: No
  Sender: FDA-Public Use
  Company Number: US-GLAXOSMITHKLINE-A0584984A

PATIENT
  Sex: Female

DRUGS (6)
  1. LAMICTAL [Suspect]
     Indication: BIPOLAR DISORDER
     Dosage: 200MG PER DAY
     Route: 048
  2. SYNTHROID [Concomitant]
  3. ALTACE [Concomitant]
  4. PREMARIN [Concomitant]
  5. LEXAPRO [Concomitant]
  6. VYTORIN [Concomitant]

REACTIONS (5)
  - DRY SKIN [None]
  - DYSPHONIA [None]
  - FATIGUE [None]
  - PHARYNGITIS [None]
  - WEIGHT INCREASED [None]
